FAERS Safety Report 4562039-5 (Version None)
Quarter: 2005Q1

REPORT INFORMATION
  Report Type: 
  Country: None (occurrence: None)
  Receive Date: 20050125
  Receipt Date: 20050125
  Transmission Date: 20050727
  Serious: Yes (Hospitalization)
  Sender: FDA-Public Use
  Company Number: None

PATIENT
  Age: 26 Year
  Sex: Female

DRUGS (2)
  1. MEPERIDINE   4MG/ML [Suspect]
     Indication: CAESAREAN SECTION
     Dates: start: 20030303, end: 20030303
  2. MEPERIDINE   4MG/ML [Suspect]
     Indication: EPIDURAL ANAESTHESIA
     Dates: start: 20030303, end: 20030303

REACTIONS (2)
  - GRAND MAL CONVULSION [None]
  - POST PROCEDURAL COMPLICATION [None]
